FAERS Safety Report 24252579 (Version 1)
Quarter: 2024Q3

REPORT INFORMATION
  Report Type: Spontaneous
  Country: GB (occurrence: GB)
  Receive Date: 20240827
  Receipt Date: 20240827
  Transmission Date: 20241017
  Serious: Yes (Other)
  Sender: AUROBINDO
  Company Number: GB-MHRA-TPP32478549C22275880YC1723557673429

PATIENT
  Age: 81 Year
  Sex: Male
  Weight: 82 kg

DRUGS (19)
  1. CLOPIDOGREL [Suspect]
     Active Substance: CLOPIDOGREL BISULFATE
     Indication: Ill-defined disorder
     Dosage: 75 MILLIGRAM, ONCE A DAY (ONE TO BE TAKEN EACH DAY)
     Route: 065
     Dates: start: 20231229
  2. Adcal [Concomitant]
     Indication: Ill-defined disorder
     Dosage: UNK UNK, TWO TIMES A DAY (TAKE ONE TWICE DAILY)
     Route: 065
     Dates: start: 20240712
  3. AMLODIPINE [Concomitant]
     Active Substance: AMLODIPINE BESYLATE
     Indication: Ill-defined disorder
     Dosage: UNK UNK, ONCE A DAY
     Route: 065
     Dates: start: 20231229
  4. ASPIRIN [Concomitant]
     Active Substance: ASPIRIN
     Indication: Ill-defined disorder
     Dosage: 1 DOSAGE FORM, ONCE A DAY [1 TO BE TAKEN EACH MORNING]
     Route: 065
     Dates: start: 20240813
  5. BUPRENORPHINE [Concomitant]
     Active Substance: BUPRENORPHINE
     Indication: Ill-defined disorder
     Dosage: UNK UNK, AS DIRECTED [APPLY ONE PATCH EACH WEEK AS DIRECTED. REMOVE O...]
     Route: 065
     Dates: start: 20231229
  6. CANDESARTAN [Concomitant]
     Active Substance: CANDESARTAN
     Indication: Ill-defined disorder
     Dosage: UNK UNK, DAILY (ONE TO BE TAKEN DAILY)
     Route: 065
     Dates: start: 20231229
  7. DOXAZOSIN [Concomitant]
     Active Substance: DOXAZOSIN MESYLATE
     Indication: Ill-defined disorder
     Dosage: UNK UNK, ONCE A DAY (ONE TO BE TAKEN EACH DAY)
     Route: 065
     Dates: start: 20231229
  8. FERROUS FUMARATE [Concomitant]
     Active Substance: FERROUS FUMARATE
     Indication: Ill-defined disorder
     Dosage: 1 DOSAGE FORM, TWO TIMES A DAY (ONE TWICE  A DAY)
     Route: 065
     Dates: start: 20240717
  9. FINASTERIDE [Concomitant]
     Active Substance: FINASTERIDE
     Indication: Ill-defined disorder
     Dosage: UNK UNK, ONCE A DAY (ONE TO BE TAKEN EACH DAY)
     Route: 065
     Dates: start: 20231229
  10. FYBOGEL [Concomitant]
     Active Substance: HERBALS\PLANTAGO OVATA SEED
     Indication: Ill-defined disorder
     Dosage: UNK UNK, ONCE A DAY
     Route: 065
     Dates: start: 20240725
  11. LANSOPRAZOLE [Concomitant]
     Active Substance: LANSOPRAZOLE
     Indication: Ill-defined disorder
     Dosage: UNK UNK, ONCE A DAY [ONE TO BE TAKEN EACH MORNING (THIS REPLACES OME...]
     Route: 065
     Dates: start: 20231229
  12. LIPITOR [Concomitant]
     Active Substance: ATORVASTATIN CALCIUM
     Indication: Ill-defined disorder
     Dosage: 1 DOSAGE FORM, ONCE A DAY
     Route: 065
     Dates: start: 20231229
  13. LEVETIRACETAM [Concomitant]
     Active Substance: LEVETIRACETAM
     Indication: Ill-defined disorder
     Dosage: 2 DOSAGE FORM, TWO TIMES A DAY (TWO TO BE TAKEN TWICE A DAY)
     Route: 065
     Dates: start: 20231229
  14. CALCIUM CARBONATE\CHOLECALCIFEROL [Concomitant]
     Active Substance: CALCIUM CARBONATE\CHOLECALCIFEROL
     Indication: Ill-defined disorder
     Dosage: 1 DOSAGE FORM, TWO TIMES A DAY (TAKE ONE TWICE A DAY)
     Route: 065
     Dates: start: 20231229
  15. OMEPRAZOLE [Concomitant]
     Active Substance: OMEPRAZOLE
     Indication: Ill-defined disorder
     Dosage: 1 DOSAGE FORM, ONCE A DAY [TAKE ONE CAPSULE EACH DAY, TAKE 2 HOURS AWAY FR...]
     Route: 065
     Dates: start: 20240813
  16. PROSHIELD PLUS [Concomitant]
     Indication: Ill-defined disorder
     Dosage: UNK UNK, TWO TIMES A DAY (APPLY MORNING AND EVENING)
     Route: 065
     Dates: start: 20230131
  17. ACETAMINOPHEN [Concomitant]
     Active Substance: ACETAMINOPHEN
     Indication: Ill-defined disorder
     Dosage: 2 DOSAGE FORM, FOUR TIMES/DAY [TWO TO BE TAKEN EVERY 4-6 HOURS UP TO FOUR TIME...]
     Route: 065
     Dates: start: 20231229
  18. SIMPLA [Concomitant]
     Indication: Ill-defined disorder
     Dosage: UNK UNK, AS DIRECTED
     Route: 065
     Dates: start: 20240708
  19. SENNA [Concomitant]
     Active Substance: SENNA LEAF\SENNOSIDES\SENNOSIDES A AND B
     Indication: Ill-defined disorder
     Dosage: UNK (ONE OR TWO TO BE TAKEN AT NIGHT FOR CONSTIPATION)
     Route: 065
     Dates: start: 20230131

REACTIONS (2)
  - Iron deficiency anaemia [Not Recovered/Not Resolved]
  - Rectal haemorrhage [Unknown]

NARRATIVE: CASE EVENT DATE: 20240101
